FAERS Safety Report 25048569 (Version 3)
Quarter: 2025Q4

REPORT INFORMATION
  Report Type: Spontaneous
  Country: US (occurrence: US)
  Receive Date: 20250307
  Receipt Date: 20251222
  Transmission Date: 20260117
  Serious: Yes (Hospitalization, Other)
  Sender: SUNOVION
  Company Number: US-SMPA-2025SPA002400

PATIENT
  Age: 78 Year
  Sex: Male

DRUGS (55)
  1. ORGOVYX [Suspect]
     Active Substance: RELUGOLIX
     Indication: Prostate cancer
     Dosage: 360 MG, SINGLE
     Route: 048
     Dates: start: 20220801, end: 20220801
  2. ORGOVYX [Suspect]
     Active Substance: RELUGOLIX
     Dosage: 120 MG, QD
     Route: 048
     Dates: start: 20220802
  3. PREDNISOLONE [Concomitant]
     Active Substance: PREDNISOLONE
  4. OFLOXACIN [Concomitant]
     Active Substance: OFLOXACIN
  5. PROLENSA [Concomitant]
     Active Substance: BROMFENAC SODIUM
  6. Bovine bone [Concomitant]
  7. VITAMIN A [Concomitant]
     Active Substance: VITAMIN A
  8. Florassist prebiotic [Concomitant]
  9. LITHIUM [Concomitant]
     Active Substance: LITHIUM
  10. MACUGUARD OCULAR SUPPORT [Concomitant]
  11. MENAQUINONE 5 [Concomitant]
     Active Substance: MENAQUINONE 5
  12. Trans-resveratrol [Concomitant]
  13. POTASSIUM CITRATE CITRIC ACID [Concomitant]
  14. ZINC [Concomitant]
     Active Substance: ZINC
  15. Prolamine [Concomitant]
  16. VITEYES [Concomitant]
  17. THYMUS PREPARATION [Concomitant]
     Active Substance: THYMUS PREPARATION
  18. VITAMIN D3 [Concomitant]
     Active Substance: CHOLECALCIFEROL
  19. EVENING PRIMROSE OIL\HERBALS [Concomitant]
     Active Substance: EVENING PRIMROSE OIL\HERBALS
  20. AMINO ACIDS, SOURCE UNSPECIFIED [Concomitant]
     Active Substance: AMINO ACIDS, SOURCE UNSPECIFIED
  21. SELENIUM [Concomitant]
     Active Substance: SELENIUM
  22. UBIQUINOL [Concomitant]
     Active Substance: UBIQUINOL
  23. TRIPLE ACTION [Concomitant]
  24. CRUCIFEROUS COMPLETE [Concomitant]
  25. Ultra prostate formula [Concomitant]
  26. ARGININE [Concomitant]
     Active Substance: ARGININE
  27. CHLOROPHYLL [Concomitant]
  28. COMPLEX [Concomitant]
  29. HYPOTHALAMUS [Concomitant]
     Active Substance: ORYCTOLAGUS CUNICULUS HYPOTHALAMUS
  30. LYSINE [Concomitant]
     Active Substance: LYSINE
  31. MAGNESIUM CITRATE [Concomitant]
     Active Substance: MAGNESIUM CITRATE
  32. MULTIZYME [Concomitant]
  33. VITAMIN C [Concomitant]
     Active Substance: ASCORBIC ACID
  34. TAURINE [Concomitant]
     Active Substance: TAURINE
  35. XTANDI [Concomitant]
     Active Substance: ENZALUTAMIDE
  36. HERBALS\TURMERIC [Concomitant]
     Active Substance: HERBALS\TURMERIC
  37. ACETAMINOPHEN [Concomitant]
     Active Substance: ACETAMINOPHEN
  38. BACLOFEN [Concomitant]
     Active Substance: BACLOFEN
  39. METHOCARBAMOL [Concomitant]
     Active Substance: METHOCARBAMOL
  40. TRAMADOL [Concomitant]
     Active Substance: TRAMADOL
  41. OXYCODONE [Concomitant]
     Active Substance: OXYCODONE
  42. DEXAMETHASONE [Concomitant]
     Active Substance: DEXAMETHASONE
  43. FUROSEMIDE [Concomitant]
     Active Substance: FUROSEMIDE
  44. ACETAMINOPHEN\HYDROCODONE [Concomitant]
     Active Substance: ACETAMINOPHEN\HYDROCODONE
  45. PREDNISONE [Concomitant]
     Active Substance: PREDNISONE
  46. PROCHLORPERAZINE [Concomitant]
     Active Substance: PROCHLORPERAZINE
  47. ZOFRAN [Concomitant]
     Active Substance: ONDANSETRON HYDROCHLORIDE
  48. Quercetin with bromelain [Concomitant]
  49. ALPHA LIPOIC ACID [Concomitant]
     Active Substance: .ALPHA.-LIPOIC ACID
  50. Super k [Concomitant]
  51. COENZYME Q10 [Concomitant]
     Active Substance: DIETARY SUPPLEMENT\UBIDECARENONE
  52. UDENYCA [Concomitant]
     Active Substance: PEGFILGRASTIM-CBQV
  53. POMI T [Concomitant]
  54. Digest [Concomitant]
  55. COLLAGEN [Concomitant]
     Active Substance: COLLAGEN

REACTIONS (4)
  - Gastrointestinal pain [Unknown]
  - Hip surgery [Unknown]
  - Pain [Unknown]
  - Product dose omission issue [Recovered/Resolved]

NARRATIVE: CASE EVENT DATE: 20250130
